FAERS Safety Report 7397414-7 (Version None)
Quarter: 2011Q2

REPORT INFORMATION
  Report Type: 
  Country: None (occurrence: None)
  Receive Date: 20110401
  Receipt Date: 20110401
  Transmission Date: 20111010
  Serious: No
  Sender: FDA-Public Use
  Company Number: None

PATIENT
  Sex: Female
  Weight: 56.6996 kg

DRUGS (6)
  1. TRIAMTERENE [Concomitant]
  2. ASPIRIN [Concomitant]
  3. CARVEDIAL [Concomitant]
  4. CALCIUM [Concomitant]
  5. VALSARTAN [Suspect]
     Dosage: 160 MG 1
  6. ZOCOR [Concomitant]

REACTIONS (3)
  - DYSPNOEA [None]
  - WEIGHT INCREASED [None]
  - JOINT SWELLING [None]
